FAERS Safety Report 20950619 (Version 2)
Quarter: 2022Q2

REPORT INFORMATION
  Report Type: Report from Study
  Country: FR (occurrence: FR)
  Receive Date: 20220613
  Receipt Date: 20220617
  Transmission Date: 20220721
  Serious: Yes (Other)
  Sender: FDA-Public Use
  Company Number: FR-002147023-NVSC2022FR122862

PATIENT

DRUGS (1)
  1. INFLIXIMAB [Suspect]
     Active Substance: INFLIXIMAB
     Indication: Uveitis
     Dosage: 5 MG/KG (AT WEEKS 0, 2, 6, AND EVERY 4 TO 6 WEEKS)
     Route: 042

REACTIONS (1)
  - Basedow^s disease [Unknown]
